FAERS Safety Report 9473367 (Version 2)
Quarter: 2013Q3

REPORT INFORMATION
  Report Type: Spontaneous
  Country: US (occurrence: US)
  Receive Date: 20130823
  Receipt Date: 20130823
  Transmission Date: 20140515
  Serious: Yes (Other)
  Sender: FDA-Public Use
  Company Number: US-BRISTOL-MYERS SQUIBB COMPANY-18924589

PATIENT
  Age: 57 Year
  Sex: Male

DRUGS (1)
  1. SPRYCEL [Suspect]
     Indication: CHRONIC MYELOID LEUKAEMIA
     Dosage: 8MAY-17MAY13: 100MG, DOSE REDUCED TO 80MG
     Route: 048
     Dates: start: 20130508

REACTIONS (1)
  - Pancytopenia [Recovered/Resolved]
